FAERS Safety Report 8269744-8 (Version None)
Quarter: 2012Q2

REPORT INFORMATION
  Report Type: 
  Country: None (occurrence: None)
  Receive Date: 20120405
  Receipt Date: 20120327
  Transmission Date: 20120825
  Serious: Yes (Hospitalization)
  Sender: FDA-Public Use
  Company Number: DKLU1077941

PATIENT
  Age: 16 Month
  Sex: Female

DRUGS (3)
  1. SABRIL [Suspect]
     Indication: INFANTILE SPASMS
     Dosage: 250 MG MILLIGRAM(S), AM; 500 MG MILLIGRAM(S), PM
     Dates: start: 20110818, end: 20120301
  2. SABRIL [Suspect]
     Indication: INFANTILE SPASMS
     Dosage: 250 MG MILLIGRAM(S), AM; 500 MG MILLIGRAM(S), PM
     Dates: start: 20120301
  3. SABRIL [Suspect]
     Indication: INFANTILE SPASMS
     Dosage: 250 MG MILLIGRAM(S), AM; 500 MG MILLIGRAM(S), PM
     Dates: start: 20120301

REACTIONS (4)
  - RESPIRATORY DISTRESS [None]
  - ENTEROBACTER TEST POSITIVE [None]
  - CONVULSION [None]
  - URINARY TRACT INFECTION BACTERIAL [None]
